FAERS Safety Report 12617989 (Version 1)
Quarter: 2016Q3

REPORT INFORMATION
  Report Type: Spontaneous
  Country: DE (occurrence: DE)
  Receive Date: 20160803
  Receipt Date: 20160803
  Transmission Date: 20161109
  Serious: Yes (Congenital Anomaly, Other)
  Sender: FDA-Public Use
  Company Number: DE-AUROBINDO-AUR-APL-2016-09917

PATIENT
  Age: 1 Day
  Sex: Male
  Weight: 3.16 kg

DRUGS (13)
  1. METHYLDOPA. [Concomitant]
     Active Substance: METHYLDOPA
     Indication: HYPERTENSION
     Dosage: 250 MG, ONCE A DAY
     Route: 064
  2. SERTRALINE [Concomitant]
     Active Substance: SERTRALINE HYDROCHLORIDE
     Indication: DEPRESSION
     Dosage: 50 MG, AS NECESSARY
     Route: 064
  3. AMISULPRID [Suspect]
     Active Substance: AMISULPRIDE
     Indication: DEPRESSION
     Dosage: 300 MG, DAILY,DOSAGE BETWEEN 100 AND 300MG /D
     Route: 064
     Dates: start: 20150706, end: 20160329
  4. CITALOPRAM [Concomitant]
     Active Substance: CITALOPRAM HYDROBROMIDE
     Indication: DEPRESSION
     Dosage: 20 MG, ONCE A DAY
     Route: 064
  5. BISOPROLOL [Concomitant]
     Active Substance: BISOPROLOL
     Indication: HYPERTENSION
     Dosage: 5 MG, ONCE A DAY
     Route: 064
     Dates: start: 20150706, end: 20160329
  6. FOLSAEURE [Concomitant]
     Active Substance: FOLIC ACID
     Indication: PROPHYLAXIS OF NEURAL TUBE DEFECT
     Dosage: 0.4 MG, DAILY
     Route: 064
     Dates: start: 20160706, end: 20160329
  7. TREVILOR RETARD [Suspect]
     Active Substance: VENLAFAXINE HYDROCHLORIDE
     Indication: DEPRESSION
     Dosage: 300 MG/D REDUCED TO 150MG/D
     Route: 064
     Dates: start: 20150706, end: 20160329
  8. INUVAIR [Concomitant]
     Active Substance: BECLOMETHASONE DIPROPIONATE\FORMOTEROL FUMARATE
     Indication: ASTHMA
     Route: 064
  9. ANAFRANIL [Suspect]
     Active Substance: CLOMIPRAMINE HYDROCHLORIDE
     Indication: DEPRESSION
     Dosage: 150 MG, AS NECESSARY EVERY THIRD DAY
     Route: 064
     Dates: start: 20150706, end: 20160329
  10. MIRTAZAPINE. [Suspect]
     Active Substance: MIRTAZAPINE
     Indication: DEPRESSION
     Dosage: 60 MG, ONCE A DAY
     Route: 064
     Dates: start: 20150706, end: 20160329
  11. ANXUT [Concomitant]
     Indication: DEPRESSION
     Dosage: DOSAGE BETWEEN 10 AND 30 MG/D
     Route: 064
  12. SALBUTAMOL [Concomitant]
     Active Substance: ALBUTEROL
     Indication: ASTHMA
     Route: 064
  13. ELONTRIL [Concomitant]
     Active Substance: BUPROPION HYDROCHLORIDE
     Indication: DEPRESSION
     Dosage: 150 MG, UNK
     Route: 064

REACTIONS (7)
  - Neonatal respiratory failure [Recovered/Resolved]
  - Persistent foetal circulation [Recovered/Resolved]
  - Cryptorchism [Recovered/Resolved]
  - Congenital inguinal hernia [Recovered/Resolved with Sequelae]
  - Foetal exposure during pregnancy [Unknown]
  - Drug withdrawal syndrome neonatal [Recovered/Resolved]
  - Patent ductus arteriosus [Unknown]

NARRATIVE: CASE EVENT DATE: 20160329
